FAERS Safety Report 5133964-1 (Version None)
Quarter: 2006Q4

REPORT INFORMATION
  Report Type: 
  Country: None (occurrence: None)
  Receive Date: 20061018
  Receipt Date: 20061008
  Transmission Date: 20070319
  Serious: Yes (Other)
  Sender: FDA-Public Use
  Company Number: 2006122309

PATIENT
  Sex: Male

DRUGS (1)
  1. UNISOM [Suspect]
     Indication: SUICIDE ATTEMPT
     Dosage: ORAL
     Route: 048
     Dates: start: 20061008, end: 20061008

REACTIONS (4)
  - HALLUCINATION [None]
  - INSOMNIA [None]
  - LOSS OF EMPLOYMENT [None]
  - THINKING ABNORMAL [None]
